FAERS Safety Report 12543914 (Version 1)
Quarter: 2016Q3

REPORT INFORMATION
  Report Type: Spontaneous
  Country: CA (occurrence: CA)
  Receive Date: 20160711
  Receipt Date: 20160711
  Transmission Date: 20161109
  Serious: Yes (Hospitalization, Other)
  Sender: FDA-Public Use
  Company Number: CA-BAUSCH-BL-2016-016207

PATIENT
  Sex: Female

DRUGS (5)
  1. PANTOLOC [Suspect]
     Active Substance: PANTOPRAZOLE SODIUM
     Indication: COUGH
  2. CLINDAMYCIN PHOSPHATE. [Suspect]
     Active Substance: CLINDAMYCIN PHOSPHATE
     Indication: COUGH
  3. CLINDAMYCIN PHOSPHATE. [Suspect]
     Active Substance: CLINDAMYCIN PHOSPHATE
     Indication: OROPHARYNGEAL PAIN
     Route: 065
  4. PANTOLOC [Suspect]
     Active Substance: PANTOPRAZOLE SODIUM
     Indication: OROPHARYNGEAL PAIN
     Route: 065
  5. LACTOBACILLUS ACIDOPHILUS/LACTOBACILLUS RHAMNOSUS/STREPTOCOCCUS THERMO [Concomitant]
     Indication: PRODUCT USED FOR UNKNOWN INDICATION

REACTIONS (5)
  - Weight decreased [Unknown]
  - Clostridium difficile infection [Unknown]
  - Vitamin B12 decreased [Unknown]
  - Malaise [Unknown]
  - Product use issue [Unknown]
